FAERS Safety Report 24950693 (Version 1)
Quarter: 2025Q1

REPORT INFORMATION
  Report Type: Spontaneous
  Country: IL (occurrence: IL)
  Receive Date: 20250210
  Receipt Date: 20250210
  Transmission Date: 20250409
  Serious: Yes (Hospitalization)
  Sender: JOHNSON AND JOHNSON
  Company Number: IL-JNJFOC-20250196184

PATIENT
  Age: 60 Year
  Sex: Male

DRUGS (7)
  1. PALIPERIDONE PALMITATE [Suspect]
     Active Substance: PALIPERIDONE PALMITATE
     Indication: Product used for unknown indication
     Route: 030
  2. PALIPERIDONE PALMITATE [Suspect]
     Active Substance: PALIPERIDONE PALMITATE
  3. PALIPERIDONE PALMITATE [Suspect]
     Active Substance: PALIPERIDONE PALMITATE
  4. BROTIZOLAM [Concomitant]
     Active Substance: BROTIZOLAM
  5. RISPERDEX [Concomitant]
  6. VALPROIC ACID [Concomitant]
     Active Substance: VALPROIC ACID
  7. PHENYTOIN [Concomitant]
     Active Substance: PHENYTOIN

REACTIONS (6)
  - Hypothermia [Unknown]
  - Bradycardia [Unknown]
  - Shock [Unknown]
  - Pyrexia [Unknown]
  - Seizure [Unknown]
  - Muscle rigidity [Unknown]
